APPROVED DRUG PRODUCT: NALIDIXIC ACID
Active Ingredient: NALIDIXIC ACID
Strength: 1GM
Dosage Form/Route: TABLET;ORAL
Application: A070272 | Product #001
Applicant: SUN PHARMACEUTICAL INDUSTRIES INC
Approved: Jun 29, 1988 | RLD: No | RS: No | Type: DISCN